FAERS Safety Report 11336281 (Version 1)
Quarter: 2015Q3

REPORT INFORMATION
  Report Type: Spontaneous
  Country: US (occurrence: US)
  Receive Date: 20150804
  Receipt Date: 20150804
  Transmission Date: 20151125
  Serious: Yes (Other)
  Sender: FDA-Public Use
  Company Number: US-ALLERGAN-1514757US

PATIENT
  Age: 67 Year
  Sex: Female

DRUGS (1)
  1. RESTASIS [Suspect]
     Active Substance: CYCLOSPORINE
     Indication: DRY EYE
     Dosage: UNK
     Route: 047
     Dates: end: 201507

REACTIONS (5)
  - Lacrimal structure injury [Unknown]
  - Eye inflammation [Unknown]
  - Myopia [Not Recovered/Not Resolved]
  - Drug dose omission [Unknown]
  - Cataract [Unknown]

NARRATIVE: CASE EVENT DATE: 201501
